FAERS Safety Report 14372001 (Version 2)
Quarter: 2018Q1

REPORT INFORMATION
  Report Type: Report from Study
  Country: US (occurrence: US)
  Receive Date: 20180110
  Receipt Date: 20180306
  Transmission Date: 20180509
  Serious: Yes (Hospitalization)
  Sender: FDA-Public Use
  Company Number: PHEH2018US000487

PATIENT
  Sex: Female

DRUGS (1)
  1. ENTRESTO [Suspect]
     Active Substance: SACUBITRIL\VALSARTAN
     Indication: PRODUCT USED FOR UNKNOWN INDICATION
     Route: 048

REACTIONS (7)
  - Oxygen saturation decreased [Unknown]
  - Dyspnoea [Unknown]
  - Headache [Recovering/Resolving]
  - Device malfunction [Unknown]
  - Disorientation [Unknown]
  - Syncope [Unknown]
  - Dizziness [Unknown]
